FAERS Safety Report 25217127 (Version 2)
Quarter: 2025Q3

REPORT INFORMATION
  Report Type: Spontaneous
  Country: US (occurrence: US)
  Receive Date: 20250419
  Receipt Date: 20250703
  Transmission Date: 20251021
  Serious: No
  Sender: SANOFI AVENTIS
  Company Number: US-SA-2025SA112629

PATIENT
  Age: 61 Year
  Sex: Female
  Weight: 109.09 kg

DRUGS (34)
  1. DUPIXENT [Suspect]
     Active Substance: DUPILUMAB
     Indication: Asthma
     Dosage: 300 MG, QOW
     Route: 058
     Dates: start: 20250225, end: 20250530
  2. FASENRA [Concomitant]
     Active Substance: BENRALIZUMAB
  3. ACETAMINOPHEN\OXYCODONE HYDROCHLORIDE [Concomitant]
     Active Substance: ACETAMINOPHEN\OXYCODONE HYDROCHLORIDE
  4. CLOPIDOGREL [Concomitant]
     Active Substance: CLOPIDOGREL BISULFATE
  5. VITAMINS NOS [Concomitant]
     Active Substance: VITAMINS
  6. RITUXAN [Concomitant]
     Active Substance: RITUXIMAB
  7. MELOXICAM [Concomitant]
     Active Substance: MELOXICAM
  8. BUDESONIDE [Concomitant]
     Active Substance: BUDESONIDE
  9. WELLBUTRIN XL [Concomitant]
     Active Substance: BUPROPION HYDROCHLORIDE
  10. VITAMIN D2 [Concomitant]
     Active Substance: ERGOCALCIFEROL
  11. METHOCARBAMOL [Concomitant]
     Active Substance: METHOCARBAMOL
  12. HYDROXYCHLOROQUINE SULFATE [Concomitant]
     Active Substance: HYDROXYCHLOROQUINE SULFATE
  13. NYSTATIN [Concomitant]
     Active Substance: NYSTATIN
  14. DOXYCYCLINE HYCLATE [Concomitant]
     Active Substance: DOXYCYCLINE HYCLATE
  15. BUSPIRONE HCL [Concomitant]
     Active Substance: BUSPIRONE HYDROCHLORIDE
  16. TRAMADOL HCL [Concomitant]
     Active Substance: TRAMADOL HYDROCHLORIDE
  17. SINGULAIR [Concomitant]
     Active Substance: MONTELUKAST SODIUM
  18. METHYLPHENIDATE [Concomitant]
     Active Substance: METHYLPHENIDATE
  19. ATORVASTATIN CALCIUM [Concomitant]
     Active Substance: ATORVASTATIN CALCIUM
  20. AZITHROMYCIN [Concomitant]
     Active Substance: AZITHROMYCIN
  21. MONTELUKAST SODIUM [Concomitant]
     Active Substance: MONTELUKAST SODIUM
  22. CYCLOSPORINE [Concomitant]
     Active Substance: CYCLOSPORINE
  23. DILTIAZEM [Concomitant]
     Active Substance: DILTIAZEM
  24. GABAPENTIN [Concomitant]
     Active Substance: GABAPENTIN
  25. GAMMAKED [Concomitant]
     Active Substance: HUMAN IMMUNOGLOBULIN G
  26. RESTASIS [Concomitant]
     Active Substance: CYCLOSPORINE
  27. IPRATROPIUM BROMIDE [Concomitant]
     Active Substance: IPRATROPIUM BROMIDE
  28. FLUTICASONE PROPIONATE [Concomitant]
     Active Substance: FLUTICASONE PROPIONATE
  29. PREDNISONE [Concomitant]
     Active Substance: PREDNISONE
  30. CALCIUM [Concomitant]
     Active Substance: CALCIUM
  31. DULOXETINE HYDROCHLORIDE [Concomitant]
     Active Substance: DULOXETINE HYDROCHLORIDE
  32. TRAZODONE HCL [Concomitant]
     Active Substance: TRAZODONE HYDROCHLORIDE
  33. AZITHROMYCIN [Concomitant]
     Active Substance: AZITHROMYCIN
  34. CEFUROXIME [Concomitant]
     Active Substance: CEFUROXIME

REACTIONS (3)
  - Vision blurred [Not Recovered/Not Resolved]
  - Dry eye [Unknown]
  - Drug ineffective [Unknown]

NARRATIVE: CASE EVENT DATE: 20250101
